FAERS Safety Report 24559447 (Version 2)
Quarter: 2025Q1

REPORT INFORMATION
  Report Type: Report from Study
  Country: CA (occurrence: CA)
  Receive Date: 20241029
  Receipt Date: 20250108
  Transmission Date: 20250409
  Serious: Yes (Other)
  Sender: SANOFI AVENTIS
  Company Number: CA-SA-SAC20240112001377

PATIENT
  Age: 43 Year
  Sex: Male

DRUGS (15)
  1. DUPILUMAB [Suspect]
     Active Substance: DUPILUMAB
     Indication: Asthma
     Route: 058
     Dates: start: 20230908, end: 20230908
  2. DUPILUMAB [Suspect]
     Active Substance: DUPILUMAB
     Dosage: 300 MG, QOW
     Route: 058
     Dates: start: 202309
  3. TELMISARTAN [Suspect]
     Active Substance: TELMISARTAN
  4. TELMISARTAN [Suspect]
     Active Substance: TELMISARTAN
  5. SYNJARDY XR [Suspect]
     Active Substance: EMPAGLIFLOZIN\METFORMIN HYDROCHLORIDE
  6. SYNJARDY XR [Suspect]
     Active Substance: EMPAGLIFLOZIN\METFORMIN HYDROCHLORIDE
  7. VENTOLIN [Concomitant]
     Active Substance: ALBUTEROL SULFATE
  8. AVELOX [Concomitant]
     Active Substance: MOXIFLOXACIN HYDROCHLORIDE
     Dates: start: 202312
  9. GABAPENTIN [Concomitant]
     Active Substance: GABAPENTIN
     Indication: Seizure
  10. INDACATEROL [Concomitant]
     Active Substance: INDACATEROL
  11. GLYCOPYRROLATE [Concomitant]
     Active Substance: GLYCOPYRROLATE
  12. MOMETASONE [Concomitant]
     Active Substance: MOMETASONE
  13. COMBIVENT RESPIMAT [Concomitant]
     Active Substance: ALBUTEROL SULFATE\IPRATROPIUM BROMIDE
  14. TOPIRAMATE [Concomitant]
     Active Substance: TOPIRAMATE
  15. GLYCOPYRROLATE\INDACATEROL\MOMETASONE FUROATE [Concomitant]
     Active Substance: GLYCOPYRROLATE\INDACATEROL\MOMETASONE FUROATE

REACTIONS (34)
  - Pneumonia bacterial [Unknown]
  - Productive cough [Recovering/Resolving]
  - Sputum discoloured [Unknown]
  - Pseudomonas infection [Unknown]
  - Nephrolithiasis [Unknown]
  - Atypical mycobacterial infection [Unknown]
  - Bronchiectasis [Unknown]
  - Haemoptysis [Unknown]
  - Pneumonia aspiration [Recovering/Resolving]
  - Seizure [Unknown]
  - Condition aggravated [Unknown]
  - Slow vital capacity [Unknown]
  - Pain [Unknown]
  - Discomfort [Unknown]
  - Hyperventilation [Unknown]
  - Chest discomfort [Unknown]
  - Neuralgia [Unknown]
  - Road traffic accident [Unknown]
  - Contusion [Unknown]
  - Injury [Unknown]
  - Increased bronchial secretion [Unknown]
  - Febrile infection [Unknown]
  - Respiratory tract congestion [Recovering/Resolving]
  - Bronchitis chronic [Unknown]
  - Condition aggravated [Unknown]
  - Upper-airway cough syndrome [Unknown]
  - Rhinitis allergic [Unknown]
  - Seasonal allergy [Unknown]
  - Sinus congestion [Unknown]
  - Hypotension [Recovered/Resolved]
  - Respiratory tract infection viral [Recovered/Resolved]
  - Bacterial infection [Recovered/Resolved]
  - Gastrooesophageal reflux disease [Unknown]
  - Condition aggravated [Unknown]

NARRATIVE: CASE EVENT DATE: 20230101
